FAERS Safety Report 4290184-0 (Version None)
Quarter: 2004Q1

REPORT INFORMATION
  Report Type: 
  Country: None (occurrence: None)
  Receive Date: 20040126
  Receipt Date: 20031003
  Transmission Date: 20041129
  Serious: No
  Sender: FDA-Public Use
  Company Number: USA030537171

PATIENT
  Age: 66 Year
  Sex: Female

DRUGS (4)
  1. TERIPARATIDE [Suspect]
     Indication: OSTEOPOROSIS
     Dosage: 20 UG/DAY
     Dates: start: 20030513
  2. SYNTHROID [Concomitant]
  3. DIGESTIVE ENZYMES [Concomitant]
  4. MULTIVITAMIN [Concomitant]

REACTIONS (6)
  - ANOREXIA [None]
  - INCREASED UPPER AIRWAY SECRETION [None]
  - INFLUENZA [None]
  - INJECTION SITE HAEMORRHAGE [None]
  - MUSCLE CRAMP [None]
  - NAUSEA [None]
